FAERS Safety Report 12960868 (Version 1)
Quarter: 2016Q4

REPORT INFORMATION
  Report Type: Spontaneous
  Country: US (occurrence: US)
  Receive Date: 20161121
  Receipt Date: 20161121
  Transmission Date: 20170207
  Serious: No
  Sender: FDA-Public Use
  Company Number: US-OTSUKA-2016_023711

PATIENT
  Age: 33 Year
  Sex: Female

DRUGS (2)
  1. NUEDEXTA [Suspect]
     Active Substance: DEXTROMETHORPHAN HYDROBROMIDE\QUINIDINE SULFATE
     Indication: AFFECT LABILITY
     Dosage: 20MG/10 MG, BID (EVERY 12 HOURS)
     Route: 065
     Dates: start: 20160928
  2. NUEDEXTA [Suspect]
     Active Substance: DEXTROMETHORPHAN HYDROBROMIDE\QUINIDINE SULFATE
     Dosage: 20MG/10 MG, QD
     Route: 065
     Dates: start: 201609

REACTIONS (4)
  - Headache [Recovered/Resolved]
  - Tearfulness [Recovered/Resolved]
  - Mood altered [Recovered/Resolved]
  - Irritability [Recovered/Resolved]
